FAERS Safety Report 7405364-2 (Version None)
Quarter: 2011Q2

REPORT INFORMATION
  Report Type: 
  Country: None (occurrence: None)
  Receive Date: 20110411
  Receipt Date: 20110315
  Transmission Date: 20111010
  Serious: Yes (Hospitalization, Other)
  Sender: FDA-Public Use
  Company Number: US-BAYER-201042054NA

PATIENT
  Age: 21 Year
  Sex: Female
  Weight: 158.73 kg

DRUGS (6)
  1. ALLEGRA [Concomitant]
  2. ADVAIR HFA [Concomitant]
  3. YAZ [Suspect]
     Indication: PRODUCT USED FOR UNKNOWN INDICATION
     Route: 048
  4. YASMIN [Suspect]
     Indication: HORMONE REPLACEMENT THERAPY
  5. YASMIN [Suspect]
     Indication: CONTRACEPTION
     Dosage: UNK
     Route: 048
     Dates: start: 20010101, end: 20050101
  6. LEVOTHROID [Concomitant]

REACTIONS (3)
  - VIITH NERVE PARALYSIS [None]
  - MEMORY IMPAIRMENT [None]
  - DEEP VEIN THROMBOSIS [None]
